FAERS Safety Report 9379585 (Version 1)
Quarter: 2013Q2

REPORT INFORMATION
  Report Type: Spontaneous
  Country: IN (occurrence: None)
  Receive Date: 20130627
  Receipt Date: 20130627
  Transmission Date: 20140414
  Serious: Yes (Hospitalization)
  Sender: FDA-Public Use
  Company Number: B0901821A

PATIENT
  Age: 30 Year
  Sex: Female

DRUGS (4)
  1. LAMIVUDINE-HIV [Suspect]
     Indication: HIV INFECTION
  2. ZIDOVUDINE [Concomitant]
  3. NEVIRAPINE [Concomitant]
  4. CO-TRIMOXAZOLE [Concomitant]

REACTIONS (3)
  - Rash maculo-papular [None]
  - Rash erythematous [None]
  - Rash pruritic [None]
